FAERS Safety Report 6273446-7 (Version None)
Quarter: 2009Q3

REPORT INFORMATION
  Report Type: 
  Country: None (occurrence: None)
  Receive Date: 20090720
  Receipt Date: 20090709
  Transmission Date: 20100115
  Serious: Yes (Other)
  Sender: FDA-Public Use
  Company Number: PHEH2009US07367

PATIENT
  Sex: Female

DRUGS (3)
  1. GLEEVEC [Suspect]
     Dosage: UNK
  2. SUCRALFATE [Concomitant]
  3. PROTONIX [Concomitant]

REACTIONS (3)
  - EYE SWELLING [None]
  - RASH PRURITIC [None]
  - TUMOUR ULCERATION [None]
